FAERS Safety Report 4748047-X (Version None)
Quarter: 2005Q3

REPORT INFORMATION
  Report Type: 
  Country: None (occurrence: None)
  Receive Date: 20050818
  Receipt Date: 20041119
  Transmission Date: 20060218
  Serious: Yes (Hospitalization)
  Sender: FDA-Public Use
  Company Number: FR-BRISTOL-MYERS SQUIBB COMPANY-12771085

PATIENT
  Age: 71 Year
  Sex: Female

DRUGS (4)
  1. ELISOR TABS 20 MG [Suspect]
     Route: 048
  2. CORTANCYL [Concomitant]
  3. CELLCEPT [Concomitant]
  4. NEORAL [Concomitant]

REACTIONS (2)
  - ALANINE AMINOTRANSFERASE INCREASED [None]
  - GAMMA-GLUTAMYLTRANSFERASE INCREASED [None]
